FAERS Safety Report 8054054-4 (Version None)
Quarter: 2012Q1

REPORT INFORMATION
  Report Type: 
  Country: None (occurrence: None)
  Receive Date: 20120111
  Receipt Date: 20120104
  Transmission Date: 20120608
  Serious: Yes (Other)
  Sender: FDA-Public Use
  Company Number: AUR-APL-2012-00201

PATIENT
  Age: 74 Year
  Sex: Female
  Weight: 49.8957 kg

DRUGS (7)
  1. PLAVIX (CLOPDOGREL) [Concomitant]
  2. SIMVASTATIN [Concomitant]
  3. DILTIAZEM [Concomitant]
  4. ALENDRONIC ACID (ALENDRONIC ACID) [Suspect]
     Indication: OSTEOPOROSIS
     Dosage: (70 MG,1 WK),ORAL
     Route: 048
     Dates: start: 20110901, end: 20111226
  5. DILANTIN [Concomitant]
  6. ISOSORBIDE (ISOSORBIDE) [Concomitant]
  7. PHENOBARBITAL TAB [Concomitant]

REACTIONS (8)
  - MYALGIA [None]
  - ARTHRALGIA [None]
  - JOINT STIFFNESS [None]
  - JOINT SWELLING [None]
  - BONE PAIN [None]
  - OEDEMA PERIPHERAL [None]
  - PALPITATIONS [None]
  - SENSATION OF HEAVINESS [None]
